FAERS Safety Report 25918541 (Version 1)
Quarter: 2025Q4

REPORT INFORMATION
  Report Type: Spontaneous
  Country: IN (occurrence: IN)
  Receive Date: 20251014
  Receipt Date: 20251014
  Transmission Date: 20260119
  Serious: Yes (Other)
  Sender: EPIC PHARM
  Company Number: IN-EPICPHARMA-IN-2025EPCLIT01153

PATIENT
  Age: 42 Year
  Sex: Male

DRUGS (1)
  1. ISONIAZID [Suspect]
     Active Substance: ISONIAZID
     Indication: Pulmonary tuberculosis
     Route: 065

REACTIONS (1)
  - Chronic cutaneous lupus erythematosus [Unknown]
